FAERS Safety Report 6401284-0 (Version None)
Quarter: 2009Q4

REPORT INFORMATION
  Report Type: 
  Country: None (occurrence: None)
  Receive Date: 20091009
  Receipt Date: 20090928
  Transmission Date: 20100525
  Serious: Yes (Hospitalization)
  Sender: FDA-Public Use
  Company Number: JP-000157

PATIENT
  Sex: Male

DRUGS (5)
  1. DESMOPRESSIN          (DESMOPRESSIN INTRANASAL KYOWA) [Suspect]
     Indication: DIABETES INSIPIDUS
     Dosage: (10 UG BID NASAL), (7.5 UG BID NASAL)
     Route: 045
     Dates: start: 20030501, end: 20080410
  2. DESMOPRESSIN          (DESMOPRESSIN INTRANASAL KYOWA) [Suspect]
     Indication: DIABETES INSIPIDUS
     Dosage: (10 UG BID NASAL), (7.5 UG BID NASAL)
     Route: 045
     Dates: start: 20080411
  3. NORVASC [Concomitant]
  4. LIPITOR [Concomitant]
  5. EPADEL [Concomitant]

REACTIONS (8)
  - BLOOD IMMUNOGLOBULIN G INCREASED [None]
  - DEPRESSED LEVEL OF CONSCIOUSNESS [None]
  - HYPONATRAEMIA [None]
  - KIDNEY FIBROSIS [None]
  - MALAISE [None]
  - PITUITARY ENLARGEMENT [None]
  - TUBULOINTERSTITIAL NEPHRITIS [None]
  - WATER INTOXICATION [None]
